FAERS Safety Report 18057106 (Version 3)
Quarter: 2020Q4

REPORT INFORMATION
  Report Type: Report from Study
  Country: MY (occurrence: MY)
  Receive Date: 20200722
  Receipt Date: 20201027
  Transmission Date: 20210113
  Serious: Yes (Other)
  Sender: FDA-Public Use
  Company Number: MY-SEATTLE GENETICS-2020SGN03013

PATIENT
  Sex: Female
  Weight: 57 kg

DRUGS (1)
  1. BRENTUXIMAB VEDOTIN [Suspect]
     Active Substance: BRENTUXIMAB VEDOTIN
     Indication: HODGKIN^S DISEASE REFRACTORY
     Dosage: 100 MILLIGRAM, Q3WEEKS
     Route: 042
     Dates: start: 20200703

REACTIONS (2)
  - Hodgkin^s disease refractory [Unknown]
  - Hepatic function abnormal [Unknown]
